FAERS Safety Report 7546789-4 (Version None)
Quarter: 2011Q2

REPORT INFORMATION
  Report Type: 
  Country: None (occurrence: None)
  Receive Date: 20110614
  Receipt Date: 20110609
  Transmission Date: 20111010
  Serious: Yes (Other)
  Sender: FDA-Public Use
  Company Number: PL-ROCHE-780138

PATIENT
  Sex: Male
  Weight: 70 kg

DRUGS (3)
  1. NEUPOGEN [Suspect]
     Route: 065
  2. PEGASYS [Suspect]
     Indication: HEPATITIS C
     Route: 065
     Dates: start: 20100101
  3. COPEGUS [Suspect]
     Indication: HEPATITIS C
     Route: 065
     Dates: start: 20100101

REACTIONS (4)
  - SKIN BACTERIAL INFECTION [None]
  - NEUTROPENIA [None]
  - TRANSAMINASES INCREASED [None]
  - LEUKOPENIA [None]
